FAERS Safety Report 8973599 (Version 2)
Quarter: 2013Q1

REPORT INFORMATION
  Report Type: Spontaneous
  Country: DE (occurrence: DE)
  Receive Date: 20121219
  Receipt Date: 20130321
  Transmission Date: 20140127
  Serious: Yes (Other)
  Sender: FDA-Public Use
  Company Number: DE-UCBSA-073329

PATIENT
  Sex: Male

DRUGS (2)
  1. KEPPRA [Suspect]
     Dates: end: 2013
  2. ASPIRIN [Concomitant]
     Indication: CIRCULATORY COLLAPSE
     Dosage: 100

REACTIONS (2)
  - Cardiac fibrillation [Unknown]
  - Dilatation ventricular [Unknown]
